FAERS Safety Report 6296138-7 (Version None)
Quarter: 2009Q3

REPORT INFORMATION
  Report Type: 
  Country: None (occurrence: None)
  Receive Date: 20090804
  Receipt Date: 20090724
  Transmission Date: 20100115
  Serious: Yes (Hospitalization)
  Sender: FDA-Public Use
  Company Number: AU-WYE-G03995209

PATIENT
  Age: 32 Year
  Sex: Male

DRUGS (1)
  1. EFFEXOR XR [Suspect]
     Indication: POST-TRAUMATIC STRESS DISORDER
     Dosage: 375MG FOR A FEW YEARS AND THEN WAS INCREASED TO 675MG DAILY AROUND 12 MONTHS AGO

REACTIONS (3)
  - AGGRESSION [None]
  - MENTAL DISORDER [None]
  - PERSONALITY CHANGE [None]
